FAERS Safety Report 5401626-9 (Version None)
Quarter: 2007Q3

REPORT INFORMATION
  Report Type: 
  Country: None (occurrence: None)
  Receive Date: 20070731
  Receipt Date: 20070719
  Transmission Date: 20080115
  Serious: Yes (Hospitalization, Other)
  Sender: FDA-Public Use
  Company Number: US-PFIZER INC-2005066930

PATIENT
  Sex: Female
  Weight: 79.4 kg

DRUGS (10)
  1. AROMASIN [Suspect]
     Indication: BREAST CANCER
     Route: 048
  2. LOPRESSOR [Concomitant]
     Indication: HYPERTENSION
     Route: 048
  3. MAXZIDE [Concomitant]
     Indication: ILL-DEFINED DISORDER
     Route: 048
  4. SINGULAIR [Concomitant]
     Indication: ILL-DEFINED DISORDER
     Route: 048
  5. WELCHOL [Concomitant]
     Indication: HYPERTENSION
     Route: 048
  6. CITRACAL + D [Concomitant]
     Indication: ILL-DEFINED DISORDER
     Route: 048
  7. ASCORBIC ACID [Concomitant]
     Indication: ILL-DEFINED DISORDER
     Route: 048
  8. GLUCOSAMINE [Concomitant]
     Indication: ILL-DEFINED DISORDER
     Route: 048
  9. ASPIRIN [Concomitant]
     Indication: ILL-DEFINED DISORDER
     Route: 048
  10. MAVIK [Concomitant]
     Indication: HYPERTENSION
     Route: 065

REACTIONS (15)
  - ABDOMINAL DISTENSION [None]
  - CONFUSIONAL STATE [None]
  - DEPRESSION [None]
  - FALL [None]
  - FATIGUE [None]
  - GAIT DISTURBANCE [None]
  - HEPATIC ENZYME INCREASED [None]
  - HEPATIC STEATOSIS [None]
  - LUNG INFECTION [None]
  - MYALGIA [None]
  - NEOPLASM MALIGNANT [None]
  - SLEEP DISORDER [None]
  - SYNCOPE [None]
  - TENDONITIS [None]
  - TOOTH DISCOLOURATION [None]
